FAERS Safety Report 6182416-9 (Version None)
Quarter: 2009Q2

REPORT INFORMATION
  Report Type: 
  Country: None (occurrence: None)
  Receive Date: 20090507
  Receipt Date: 20090422
  Transmission Date: 20091009
  Serious: Yes (Other)
  Sender: FDA-Public Use
  Company Number: US-BAYER-200918062NA

PATIENT
  Age: 23 Year
  Sex: Female
  Weight: 44 kg

DRUGS (4)
  1. MIRENA [Suspect]
     Indication: CONTRACEPTION
     Route: 015
     Dates: start: 20081007, end: 20090420
  2. VALIUM [Concomitant]
  3. AMBIEN [Concomitant]
  4. TRAMADOL HCL [Concomitant]

REACTIONS (10)
  - ABDOMINAL PAIN UPPER [None]
  - BACK PAIN [None]
  - CYST RUPTURE [None]
  - IUCD COMPLICATION [None]
  - POST PROCEDURAL HAEMORRHAGE [None]
  - PREGNANCY WITH CONTRACEPTIVE DEVICE [None]
  - PROCEDURAL PAIN [None]
  - SURGERY [None]
  - VAGINAL DISCHARGE [None]
  - WEIGHT DECREASED [None]
